FAERS Safety Report 6814498-2 (Version None)
Quarter: 2010Q2

REPORT INFORMATION
  Report Type: 
  Country: None (occurrence: None)
  Receive Date: 20100629
  Receipt Date: 20100616
  Transmission Date: 20101027
  Serious: Yes (Other)
  Sender: FDA-Public Use
  Company Number: 20108896

PATIENT
  Age: 29 Year
  Sex: Female

DRUGS (1)
  1. LIORESAL [Suspect]
     Indication: MUSCLE SPASTICITY
     Dosage: 800MCG, DAILY INTRATHECAL
     Route: 037

REACTIONS (3)
  - DEVICE LEAKAGE [None]
  - IMPLANT SITE EFFUSION [None]
  - WOUND DEHISCENCE [None]
